FAERS Safety Report 11655362 (Version 1)
Quarter: 2015Q4

REPORT INFORMATION
  Report Type: Spontaneous
  Country: US (occurrence: None)
  Receive Date: 20151022
  Receipt Date: 20151022
  Transmission Date: 20160304
  Serious: Yes (Hospitalization)
  Sender: FDA-Public Use
  Company Number: None

PATIENT
  Age: 32 Year
  Sex: Male
  Weight: 85 kg

DRUGS (1)
  1. SULFAMETHOXAZOLE/TRIMETHOPRIM [Suspect]
     Active Substance: SULFAMETHOXAZOLE\TRIMETHOPRIM
     Indication: INJECTION
     Route: 048
     Dates: start: 20150724, end: 20150731

REACTIONS (6)
  - Leukopenia [None]
  - Nausea [None]
  - Liver function test abnormal [None]
  - Vomiting [None]
  - Diarrhoea [None]
  - Thrombocytopenia [None]

NARRATIVE: CASE EVENT DATE: 20150828
